FAERS Safety Report 8927399 (Version 2)
Quarter: 2012Q4

REPORT INFORMATION
  Report Type: Report from Study
  Country: JP (occurrence: JP)
  Receive Date: 20121127
  Receipt Date: 20121221
  Transmission Date: 20130627
  Serious: Yes (Other)
  Sender: FDA-Public Use
  Company Number: JP-VERTEX PHARMACEUTICAL INC.-2012-025069

PATIENT
  Age: 62 Year
  Sex: Male

DRUGS (12)
  1. VX-950 (TELAPREVIR) [Suspect]
     Indication: CHRONIC HEPATITIS C
     Dosage: 1500 mg, qd
     Route: 048
     Dates: start: 20120912, end: 20121205
  2. RIBAVIRIN [Suspect]
     Indication: CHRONIC HEPATITIS C
     Dosage: 800 mg, qd
     Route: 048
     Dates: start: 20120912, end: 20121002
  3. RIBAVIRIN [Suspect]
     Dosage: 400 mg, qd
     Route: 048
     Dates: start: 20121003, end: 20121016
  4. RIBAVIRIN [Suspect]
     Dosage: 200 mg, qd
     Route: 048
     Dates: start: 20121017
  5. PEGINTERFERON ALFA-2B [Suspect]
     Indication: CHRONIC HEPATITIS C
     Dosage: 120 ?g, qw
     Route: 058
     Dates: start: 20120912, end: 20120919
  6. PEGINTERFERON ALFA-2B [Suspect]
     Dosage: 60 ?g, qw
     Route: 058
     Dates: start: 20120920, end: 20120925
  7. PEGINTERFERON ALFA-2B [Suspect]
     Dosage: 120 ?g, qw
     Route: 058
     Dates: start: 20120926
  8. TALION                             /01587402/ [Concomitant]
     Dosage: 10 mg, qd
     Route: 048
     Dates: end: 20120916
  9. PARIET [Concomitant]
     Dosage: 20 mg, qd
     Route: 048
  10. LOXONIN [Concomitant]
     Dosage: 60 mg, prn
     Route: 048
     Dates: start: 20120912
  11. VOLTAREN                           /00372301/ [Concomitant]
     Dosage: 25 mg, prn
     Route: 054
     Dates: start: 20120912
  12. URSO                               /00465701/ [Concomitant]
     Dosage: 600 mg, qd
     Route: 048

REACTIONS (1)
  - Neutrophil count decreased [Recovered/Resolved]
